FAERS Safety Report 21931401 (Version 1)
Quarter: 2023Q1

REPORT INFORMATION
  Report Type: Spontaneous
  Country: US (occurrence: None)
  Receive Date: 20230130
  Receipt Date: 20230130
  Transmission Date: 20230417
  Serious: No
  Sender: FDA-Public Use
  Company Number: None

PATIENT
  Age: 57 Year
  Sex: Female
  Weight: 94.5 kg

DRUGS (1)
  1. MYRBETRIQ [Suspect]
     Active Substance: MIRABEGRON
     Indication: Incontinence
     Dosage: OTHER QUANTITY : 1 TABLET(S);?
     Route: 048
     Dates: start: 20230112, end: 20230121

REACTIONS (6)
  - Respiration abnormal [None]
  - Dysphagia [None]
  - Hypertension [None]
  - Myalgia [None]
  - Arthralgia [None]
  - Nausea [None]

NARRATIVE: CASE EVENT DATE: 20230114
